FAERS Safety Report 7820736-X (Version None)
Quarter: 2011Q4

REPORT INFORMATION
  Report Type: 
  Country: None (occurrence: None)
  Receive Date: 20111018
  Receipt Date: 20111011
  Transmission Date: 20120403
  Serious: Yes (Hospitalization)
  Sender: FDA-Public Use
  Company Number: DE-PFIZER INC-2011241952

PATIENT
  Age: 14 Year
  Sex: Male

DRUGS (4)
  1. LEVETIRACETAM [Interacting]
     Dosage: UNK
  2. ZYVOX [Suspect]
     Dosage: UNK
  3. VALPROATE SODIUM [Interacting]
     Dosage: UNK
  4. TOPIRAMATE [Interacting]
     Dosage: UNK

REACTIONS (3)
  - DRUG INTERACTION [None]
  - DRUG LEVEL DECREASED [None]
  - CONVULSION [None]
